FAERS Safety Report 16733143 (Version 1)
Quarter: 2019Q3

REPORT INFORMATION
  Report Type: Spontaneous
  Country: FR (occurrence: FR)
  Receive Date: 20190823
  Receipt Date: 20190823
  Transmission Date: 20191005
  Serious: Yes (Other)
  Sender: FDA-Public Use
  Company Number: FR-SUN PHARMACEUTICAL INDUSTRIES LTD-2019RR-218473

PATIENT
  Age: 46 Year
  Sex: Female

DRUGS (2)
  1. PREDNISONE. [Concomitant]
     Active Substance: PREDNISONE
     Indication: SINUSITIS
     Dosage: 5 MILLIGRAM, DAILY
     Route: 048
     Dates: start: 20190517, end: 20190518
  2. DESLORATADINE. [Suspect]
     Active Substance: DESLORATADINE
     Indication: SINUSITIS
     Dosage: 50 MILLIGRAM, DAILY
     Route: 048
     Dates: start: 20190517, end: 20190518

REACTIONS (4)
  - Accidental overdose [Recovered/Resolved]
  - Incorrect dosage administered [Recovered/Resolved]
  - Headache [Recovered/Resolved]
  - Somnolence [Recovered/Resolved]

NARRATIVE: CASE EVENT DATE: 20190517
